FAERS Safety Report 7732726-6 (Version None)
Quarter: 2011Q3

REPORT INFORMATION
  Report Type: 
  Country: None (occurrence: None)
  Receive Date: 20110907
  Receipt Date: 20110830
  Transmission Date: 20111222
  Serious: No
  Sender: FDA-Public Use
  Company Number: US-BIOGENIDEC-2011BI033188

PATIENT
  Age: 43 Year
  Sex: Male

DRUGS (2)
  1. AVONEX [Suspect]
     Indication: MULTIPLE SCLEROSIS
     Route: 030
     Dates: start: 20100724
  2. SINUTAB [Concomitant]
     Indication: CHRONIC MYELOID LEUKAEMIA

REACTIONS (3)
  - DENTAL CARIES [None]
  - TOOTH FRACTURE [None]
  - INFLUENZA LIKE ILLNESS [None]
